FAERS Safety Report 7609257-7 (Version None)
Quarter: 2011Q3

REPORT INFORMATION
  Report Type: 
  Country: None (occurrence: None)
  Receive Date: 20110706
  Receipt Date: 20110628
  Transmission Date: 20111222
  Serious: Yes (Hospitalization)
  Sender: FDA-Public Use
  Company Number: 2011FR0121

PATIENT
  Age: 10 Year
  Sex: Female

DRUGS (3)
  1. SELENIUM (SELENIUM) [Concomitant]
  2. CALCIUM PHOSPHATE (CALCIUM PHOSPHATE) [Concomitant]
  3. ORFADIN [Suspect]
     Indication: TYROSINAEMIA
     Dosage: 40 MG (20 MG, 2 IN 1 D)
     Dates: start: 20061101

REACTIONS (2)
  - HEPATIC NEOPLASM MALIGNANT [None]
  - LIVER TRANSPLANT [None]
